FAERS Safety Report 13085557 (Version 1)
Quarter: 2017Q1

REPORT INFORMATION
  Report Type: Spontaneous
  Country: US (occurrence: US)
  Receive Date: 20170104
  Receipt Date: 20170104
  Transmission Date: 20170428
  Serious: Yes (Other)
  Sender: FDA-Public Use
  Company Number: US-PFIZER INC-2017001904

PATIENT
  Sex: Male
  Weight: 68 kg

DRUGS (1)
  1. VIAGRA [Suspect]
     Active Substance: SILDENAFIL CITRATE
     Indication: ERECTILE DYSFUNCTION
     Dosage: PROBABLY TWICE A DAY
     Route: 048
     Dates: start: 201611

REACTIONS (3)
  - Penile pain [Unknown]
  - Erection increased [Unknown]
  - Product use issue [Unknown]

NARRATIVE: CASE EVENT DATE: 201611
